FAERS Safety Report 17920358 (Version 1)
Quarter: 2020Q2

REPORT INFORMATION
  Report Type: Spontaneous
  Country: FR (occurrence: FR)
  Receive Date: 20200620
  Receipt Date: 20200620
  Transmission Date: 20200714
  Serious: Yes (Death, Other)
  Sender: FDA-Public Use
  Company Number: NVSC2020FR171971

PATIENT
  Age: 68 Year
  Sex: Male
  Weight: 72 kg

DRUGS (1)
  1. TACROLIMUS. [Suspect]
     Active Substance: TACROLIMUS
     Indication: IMMUNOSUPPRESSION
     Dosage: 2 MG, QD (MODIFIED-RELEASE CAPSULE, HARD)
     Route: 048
     Dates: start: 20180303, end: 20200220

REACTIONS (1)
  - Lung adenocarcinoma [Fatal]

NARRATIVE: CASE EVENT DATE: 202001
